FAERS Safety Report 11139220 (Version 2)
Quarter: 2015Q3

REPORT INFORMATION
  Report Type: Spontaneous
  Country: US (occurrence: US)
  Receive Date: 20150527
  Receipt Date: 20150817
  Transmission Date: 20151125
  Serious: Yes (Other)
  Sender: FDA-Public Use
  Company Number: US-BAYER-2015-256238

PATIENT
  Age: 24 Year
  Sex: Female
  Weight: 56.69 kg

DRUGS (1)
  1. MIRENA [Suspect]
     Active Substance: LEVONORGESTREL
     Indication: CONTRACEPTION
     Dosage: 20 MCG/24HR, CONT
     Route: 015
     Dates: start: 201404, end: 201501

REACTIONS (5)
  - Fatigue [None]
  - Abdominal pain [Recovered/Resolved]
  - Abdominal distension [None]
  - Headache [None]
  - Genital haemorrhage [None]

NARRATIVE: CASE EVENT DATE: 201404
